FAERS Safety Report 22084562 (Version 1)
Quarter: 2023Q1

REPORT INFORMATION
  Report Type: Spontaneous
  Country: US (occurrence: None)
  Receive Date: 20230309
  Receipt Date: 20230309
  Transmission Date: 20230418
  Serious: Yes (Hospitalization)
  Sender: FDA-Public Use
  Company Number: None

PATIENT
  Age: 58 Year
  Sex: Female
  Weight: 71.4 kg

DRUGS (1)
  1. VANCOMYCIN [Suspect]
     Active Substance: VANCOMYCIN
     Indication: Vascular device infection
     Dosage: FREQUENCY : 3 TIMES A WEEK;?
     Route: 041
     Dates: start: 20230223, end: 20230223

REACTIONS (6)
  - Dyspnoea [None]
  - Anxiety [None]
  - Pharyngeal swelling [None]
  - Therapy interrupted [None]
  - Drug hypersensitivity [None]
  - Heart rate increased [None]

NARRATIVE: CASE EVENT DATE: 20230223
